FAERS Safety Report 9506824 (Version 3)
Quarter: 2013Q4

REPORT INFORMATION
  Report Type: Spontaneous
  Country: SE (occurrence: SE)
  Receive Date: 20130909
  Receipt Date: 20131125
  Transmission Date: 20140711
  Serious: Yes (Hospitalization)
  Sender: FDA-Public Use
  Company Number: SE-BIOGENIDEC-2013BI082783

PATIENT
  Sex: Female

DRUGS (1)
  1. TYSABRI [Suspect]
     Indication: MULTIPLE SCLEROSIS
     Route: 042
     Dates: start: 20130604, end: 20130604

REACTIONS (2)
  - Alveolitis allergic [Not Recovered/Not Resolved]
  - Pneumonia mycoplasmal [Unknown]
